FAERS Safety Report 14328782 (Version 4)
Quarter: 2019Q1

REPORT INFORMATION
  Report Type: Report from Study
  Country: US (occurrence: US)
  Receive Date: 20171227
  Receipt Date: 20190321
  Transmission Date: 20190417
  Serious: Yes (Death, Hospitalization, Other)
  Sender: FDA-Public Use
  Company Number: US-ACTELION-A-US2017-159533

PATIENT
  Age: 68 Year
  Sex: Male

DRUGS (1)
  1. OPSUMIT [Suspect]
     Active Substance: MACITENTAN
     Indication: PULMONARY ARTERIAL HYPERTENSION
     Dosage: 10 MG, QD
     Route: 048
     Dates: start: 20161110

REACTIONS (12)
  - Cough [Recovering/Resolving]
  - Abnormal sensation in eye [Recovering/Resolving]
  - Dyspnoea [Recovering/Resolving]
  - Diarrhoea [Unknown]
  - Feeling abnormal [Unknown]
  - Neuropathy peripheral [Unknown]
  - Productive cough [Recovering/Resolving]
  - Pulmonary hypertension [Unknown]
  - Pain [Unknown]
  - Death [Fatal]
  - Eye swelling [Recovering/Resolving]
  - Oedema peripheral [Recovering/Resolving]

NARRATIVE: CASE EVENT DATE: 20180123
